FAERS Safety Report 10503050 (Version 10)
Quarter: 2016Q4

REPORT INFORMATION
  Report Type: Spontaneous
  Country: CA (occurrence: CA)
  Receive Date: 20141007
  Receipt Date: 20161111
  Transmission Date: 20170206
  Serious: Yes (Hospitalization, Other)
  Sender: FDA-Public Use
  Company Number: CA-GSKJP-KK201401587GSK1550188SC003

PATIENT
  Age: 39 Year
  Sex: Male
  Weight: 89.4 kg

DRUGS (6)
  1. PREDNISONE. [Suspect]
     Active Substance: PREDNISONE
     Indication: PRODUCT USED FOR UNKNOWN INDICATION
     Dosage: UNK UNK, U
     Route: 065
  2. BENLYSTA [Suspect]
     Active Substance: BELIMUMAB
     Dosage: 890 MG, UNK
     Route: 042
  3. BENLYSTA [Suspect]
     Active Substance: BELIMUMAB
     Dosage: 890 MG, UNK
     Route: 042
     Dates: start: 20150123
  4. BENLYSTA [Suspect]
     Active Substance: BELIMUMAB
     Indication: SYSTEMIC LUPUS ERYTHEMATOSUS
     Dosage: 890 MG, 0,2,4 WEEKS THEN EVERY 4 WEEKS
     Route: 042
     Dates: start: 20120302
  5. BENLYSTA [Suspect]
     Active Substance: BELIMUMAB
     Dosage: 890 MG, UNK
     Route: 042
  6. BENLYSTA [Suspect]
     Active Substance: BELIMUMAB
     Dosage: 890 MG, UNK
     Route: 042

REACTIONS (16)
  - Vomiting [Unknown]
  - Diarrhoea [Unknown]
  - Clostridium difficile infection [Recovered/Resolved]
  - Abnormal faeces [Unknown]
  - Fatigue [Unknown]
  - Osteonecrosis [Unknown]
  - Nausea [Unknown]
  - Pericarditis [Unknown]
  - Myalgia [Unknown]
  - Arthritis [Recovered/Resolved]
  - Tooth infection [Unknown]
  - Therapeutic response unexpected [Unknown]
  - Weight decreased [Unknown]
  - Upper respiratory tract infection [Unknown]
  - Arthralgia [Unknown]
  - Nasopharyngitis [Unknown]

NARRATIVE: CASE EVENT DATE: 201409
